FAERS Safety Report 12055775 (Version 1)
Quarter: 2016Q1

REPORT INFORMATION
  Report Type: Other
  Country: US (occurrence: US)
  Receive Date: 20160209
  Receipt Date: 20160209
  Transmission Date: 20160526
  Serious: Yes (Death, Other)
  Sender: FDA-Public Use
  Company Number: US-SHIRE-US201601375

PATIENT
  Age: 88 Year
  Sex: Male

DRUGS (1)
  1. VPRIV [Suspect]
     Active Substance: VELAGLUCERASE ALFA
     Indication: GAUCHER^S DISEASE
     Dosage: 5200 IU (13 VIALS), 1X/2WKS (BIWEEKLY)
     Route: 041
     Dates: start: 20100706

REACTIONS (1)
  - Death [Fatal]

NARRATIVE: CASE EVENT DATE: 20160111
